FAERS Safety Report 9063804 (Version 1)
Quarter: 2013Q1

REPORT INFORMATION
  Report Type: Spontaneous
  Country: US (occurrence: US)
  Receive Date: 20130213
  Receipt Date: 20130213
  Transmission Date: 20140127
  Serious: Yes (Other)
  Sender: FDA-Public Use
  Company Number: US-PFIZER INC-2013051091

PATIENT
  Sex: Male

DRUGS (3)
  1. XALATAN [Suspect]
     Dosage: UNK
  2. PROTONIX [Concomitant]
     Dosage: UNK
  3. NEURONTIN [Concomitant]
     Dosage: UNK

REACTIONS (1)
  - Intraocular pressure increased [Unknown]
